FAERS Safety Report 4465811-5 (Version None)
Quarter: 2004Q3

REPORT INFORMATION
  Report Type: 
  Country: None (occurrence: None)
  Receive Date: 20040929
  Receipt Date: 20040929
  Transmission Date: 20050211
  Serious: Yes (Hospitalization)
  Sender: FDA-Public Use
  Company Number: None

PATIENT
  Sex: Male
  Weight: 93.8946 kg

DRUGS (1)
  1. ACCUPRIL [Suspect]
     Indication: HYPERTENSION

REACTIONS (2)
  - PANCREATIC PSEUDOCYST [None]
  - PANCREATITIS [None]
